FAERS Safety Report 20840692 (Version 1)
Quarter: 2022Q2

REPORT INFORMATION
  Report Type: Spontaneous
  Country: US (occurrence: None)
  Receive Date: 20220517
  Receipt Date: 20220517
  Transmission Date: 20220721
  Serious: No
  Sender: FDA-Public Use
  Company Number: 2022A182764

PATIENT
  Age: 26784 Day
  Sex: Female
  Weight: 77.1 kg

DRUGS (4)
  1. BUDESONIDE\FORMOTEROL [Suspect]
     Active Substance: BUDESONIDE\FORMOTEROL
     Indication: Cough
     Dosage: 160/4.5 MCG TWO PUFFS TWICE EACH DAY
     Route: 055
     Dates: start: 20220506, end: 20220509
  2. BUDESONIDE\FORMOTEROL [Suspect]
     Active Substance: BUDESONIDE\FORMOTEROL
     Indication: Asthma
     Dosage: 160/4.5 MCG TWO PUFFS TWICE EACH DAY
     Route: 055
     Dates: start: 20220506, end: 20220509
  3. BUDESONIDE\FORMOTEROL [Suspect]
     Active Substance: BUDESONIDE\FORMOTEROL
     Indication: Oropharyngeal discomfort
     Dosage: 160/4.5 MCG TWO PUFFS TWICE EACH DAY
     Route: 055
     Dates: start: 20220506, end: 20220509
  4. PREDNISONE [Concomitant]
     Active Substance: PREDNISONE

REACTIONS (3)
  - Cough [Not Recovered/Not Resolved]
  - Overweight [Not Recovered/Not Resolved]
  - Drug ineffective [Unknown]

NARRATIVE: CASE EVENT DATE: 20220509
